FAERS Safety Report 10177183 (Version 1)
Quarter: 2014Q2

REPORT INFORMATION
  Report Type: Report from Study
  Country: US (occurrence: US)
  Receive Date: 20140516
  Receipt Date: 20140516
  Transmission Date: 20141212
  Serious: Yes (Hospitalization, Other)
  Sender: FDA-Public Use
  Company Number: US-ABBVIE-14P-163-1235772-00

PATIENT
  Sex: Male
  Weight: 93.52 kg

DRUGS (4)
  1. HUMIRA [Suspect]
     Indication: SERONEGATIVE ARTHRITIS
     Dates: end: 201303
  2. HUMIRA [Suspect]
  3. KEFLEX [Suspect]
     Indication: HIP SURGERY
     Dates: start: 201303, end: 201303
  4. ADHESIVE TAPE [Suspect]
     Indication: WOUND
     Dates: start: 201303, end: 201303

REACTIONS (7)
  - Poor peripheral circulation [Recovered/Resolved]
  - Osteonecrosis [Recovered/Resolved]
  - Blister [Recovered/Resolved]
  - Rotator cuff syndrome [Recovered/Resolved]
  - Joint dislocation [Recovered/Resolved]
  - Off label use [Unknown]
  - Joint arthroplasty [Unknown]
